FAERS Safety Report 9178067 (Version 2)
Quarter: 2013Q2

REPORT INFORMATION
  Report Type: Spontaneous
  Country: IT (occurrence: IT)
  Receive Date: 20130321
  Receipt Date: 20130620
  Transmission Date: 20140414
  Serious: Yes (Hospitalization)
  Sender: FDA-Public Use
  Company Number: IT-ELI_LILLY_AND_COMPANY-IT201303004191

PATIENT
  Age: 89 Year
  Sex: Female

DRUGS (7)
  1. HUMALOG LISPRO [Suspect]
     Indication: TYPE 2 DIABETES MELLITUS
     Dosage: 23 U, QD
     Route: 058
     Dates: start: 20121001
  2. HUMALOG LISPRO [Suspect]
     Dosage: 3 U, EACH MORNING
     Route: 058
  3. HUMALOG LISPRO [Suspect]
     Dosage: 4 U, BID
     Route: 058
  4. BISOPROLOL FUMARATE [Concomitant]
     Dosage: 1 DF, UNKNOWN
     Route: 048
  5. GAVISCON ADVANCE [Concomitant]
     Dosage: 1 DF, UNKNOWN
  6. COUMADIN [Concomitant]
     Dosage: 5 MG, UNKNOWN
     Route: 048
  7. CORIXIL [Concomitant]
     Dosage: 1 DF, UNKNOWN
     Route: 048

REACTIONS (3)
  - Hypoglycaemia [Recovering/Resolving]
  - Tremor [Recovering/Resolving]
  - Hyperhidrosis [Recovering/Resolving]
